FAERS Safety Report 9986625 (Version 1)
Quarter: 2014Q1

REPORT INFORMATION
  Report Type: Spontaneous
  Country: US (occurrence: US)
  Receive Date: 20140307
  Receipt Date: 20140307
  Transmission Date: 20141002
  Serious: No
  Sender: FDA-Public Use
  Company Number: US-ABBVIE-13P-163-1074893-00

PATIENT
  Age: 58 Year
  Sex: Male
  Weight: 86.26 kg

DRUGS (7)
  1. HUMIRA [Suspect]
     Indication: CROHN^S DISEASE
     Dates: start: 201212
  2. OMEPRAZOLE [Concomitant]
     Indication: GASTROOESOPHAGEAL REFLUX DISEASE
  3. COLAZOL [Concomitant]
     Indication: CROHN^S DISEASE
  4. FENOFIBRATE [Concomitant]
     Indication: BLOOD CHOLESTEROL
  5. AMYTRIPTYLLINE [Concomitant]
     Indication: INSOMNIA
  6. LABETALOL [Concomitant]
     Indication: HYPERTENSION
  7. RIBOFLAVINOID [Concomitant]
     Indication: TINNITUS

REACTIONS (2)
  - Rash [Not Recovered/Not Resolved]
  - Pruritus [Not Recovered/Not Resolved]
